FAERS Safety Report 8607804-X (Version None)
Quarter: 2012Q3

REPORT INFORMATION
  Report Type: 
  Country: None (occurrence: None)
  Receive Date: 20120821
  Receipt Date: 20120816
  Transmission Date: 20120928
  Serious: Yes (Other)
  Sender: FDA-Public Use
  Company Number: PHHY2012JP071492

PATIENT
  Age: 23 Year
  Sex: Male

DRUGS (10)
  1. LAMOTRIGINE [Concomitant]
     Dosage: 25 MG, UNK
     Route: 048
  2. LEVETIRACETAM [Concomitant]
     Dosage: 1000 MG, UNK
     Route: 048
  3. GABAPENTIN [Concomitant]
     Dosage: 800 MG, UNK
     Route: 048
  4. LAMOTRIGINE [Concomitant]
     Dosage: 50 MG, UNK
     Route: 048
  5. LEVETIRACETAM [Concomitant]
     Dosage: 500 MG, UNK
     Route: 048
  6. CLOBAZAM [Concomitant]
     Dosage: 25 MG, UNK
     Route: 048
  7. LAMOTRIGINE [Concomitant]
     Dosage: 10 MG, UNK
     Route: 048
  8. LAMOTRIGINE [Concomitant]
     Dosage: 100 MG, UNK
     Route: 048
  9. CARBAMAZEPINE [Suspect]
     Indication: EPILEPSY
     Dosage: 500 MG, DAILY
     Route: 048
  10. VALPROATE SODIUM [Concomitant]
     Dosage: 1000 MG, UN
     Route: 048

REACTIONS (2)
  - SPINOCEREBELLAR DISORDER [None]
  - EPILEPSY [None]
